FAERS Safety Report 5969296-9 (Version None)
Quarter: 2008Q4

REPORT INFORMATION
  Report Type: 
  Country: None (occurrence: None)
  Receive Date: 20081126
  Receipt Date: 20080312
  Transmission Date: 20090506
  Serious: Yes (Other)
  Sender: FDA-Public Use
  Company Number: JP-PFIZER INC-2008056465

PATIENT
  Age: 59 Year
  Sex: Male

DRUGS (12)
  1. MIGLITOL TABLET [Suspect]
     Indication: DIABETES MELLITUS
     Dosage: DAILY DOSE:150MG
     Route: 048
     Dates: start: 20080228, end: 20080305
  2. ADALAT [Concomitant]
     Dosage: DAILY DOSE:20MG
     Route: 048
  3. DIOVAN [Concomitant]
     Dosage: DAILY DOSE:40MG
     Route: 048
  4. TOWAMIN [Concomitant]
     Dosage: DAILY DOSE:25MG
     Route: 048
  5. ALLOPURINOL [Concomitant]
     Dosage: DAILY DOSE:100MG
     Route: 048
  6. URALYT [Concomitant]
     Dosage: DAILY DOSE:1GRAM
     Route: 048
  7. MELBIN [Concomitant]
     Dosage: DAILY DOSE:500MG
     Route: 048
  8. AMOBAN [Concomitant]
     Dosage: DAILY DOSE:7.5MG
     Route: 048
  9. WARFARIN SODIUM [Concomitant]
     Dosage: DAILY DOSE:7MG
     Route: 048
  10. ASPIRIN [Concomitant]
     Dosage: DAILY DOSE:200MG
     Route: 048
  11. PANALDINE [Concomitant]
     Dosage: DAILY DOSE:200MG
     Route: 048
  12. LIVALO [Concomitant]
     Dosage: DAILY DOSE:2MG
     Route: 048

REACTIONS (5)
  - ALANINE AMINOTRANSFERASE INCREASED [None]
  - ASPARTATE AMINOTRANSFERASE INCREASED [None]
  - DIARRHOEA [None]
  - GAMMA-GLUTAMYLTRANSFERASE INCREASED [None]
  - HEPATIC FUNCTION ABNORMAL [None]
